FAERS Safety Report 5278057-8 (Version None)
Quarter: 2007Q1

REPORT INFORMATION
  Report Type: 
  Country: None (occurrence: None)
  Receive Date: 20070327
  Receipt Date: 20070319
  Transmission Date: 20070707
  Serious: Yes (Hospitalization)
  Sender: FDA-Public Use
  Company Number: AU-ELI_LILLY_AND_COMPANY-AU200702001999

PATIENT
  Age: 75 Year
  Sex: Male

DRUGS (8)
  1. CIALIS [Suspect]
     Indication: ERECTILE DYSFUNCTION
     Dosage: 20 MG, UNK
     Dates: start: 20070127, end: 20070127
  2. ADALAT [Concomitant]
     Dosage: 30 MG, UNK
  3. ASPIRIN [Concomitant]
     Dosage: 150 MG, UNK
     Dates: end: 20070201
  4. PRAVACHOL [Concomitant]
     Dosage: 40 MG, UNK
  5. PREDNISOLONE [Concomitant]
     Dosage: 5 MG, OTHER
  6. ANPEC /00014302/ [Concomitant]
     Dosage: 80 MG, UNK
  7. FERRUM H [Concomitant]
     Route: 030
  8. NEO-CYTAMEN [Concomitant]

REACTIONS (3)
  - CEREBROVASCULAR ACCIDENT [None]
  - DIZZINESS [None]
  - HEADACHE [None]
